FAERS Safety Report 9580106 (Version 1)
Quarter: 2013Q3

REPORT INFORMATION
  Report Type: Spontaneous
  Country: CH (occurrence: None)
  Receive Date: 20130930
  Receipt Date: 20130930
  Transmission Date: 20140515
  Serious: Yes (Other)
  Sender: FDA-Public Use
  Company Number: ABR_01141_2013

PATIENT
  Sex: Female
  Weight: 87 kg

DRUGS (4)
  1. EDARBI [Suspect]
     Indication: HYPERTENSION
     Route: 048
     Dates: start: 20130809, end: 20130815
  2. ASPIRIN CARDIO [Concomitant]
  3. CRESTOR [Concomitant]
  4. VITAMIN D [Concomitant]

REACTIONS (4)
  - Anxiety [None]
  - Hypotension [None]
  - Dizziness [None]
  - Loss of consciousness [None]
